FAERS Safety Report 5152522-6 (Version None)
Quarter: 2006Q4

REPORT INFORMATION
  Report Type: 
  Country: None (occurrence: None)
  Receive Date: 20061116
  Receipt Date: 20061013
  Transmission Date: 20070319
  Serious: Yes (Death, Other)
  Sender: FDA-Public Use
  Company Number: US-ELI_LILLY_AND_COMPANY-US200610002495

PATIENT
  Age: 64 Year
  Sex: Male
  Weight: 64 kg

DRUGS (5)
  1. MANNITOL [Concomitant]
     Dosage: 2.5 MG, OTHER
     Route: 042
     Dates: start: 20060801, end: 20061001
  2. GEMZAR [Suspect]
     Indication: NON-HODGKIN'S LYMPHOMA
     Dosage: 1955 MG, OTHER
     Route: 042
     Dates: start: 20060801, end: 20060901
  3. GEMZAR [Suspect]
     Dosage: 922 MG, OTHER
     Route: 042
     Dates: start: 20061013, end: 20061001
  4. CISPLATIN [Concomitant]
     Indication: NON-HODGKIN'S LYMPHOMA
     Dosage: 56 MG/M2, OTHER
     Route: 042
     Dates: start: 20060808, end: 20061013
  5. DEXAMETHASONE TAB [Concomitant]
     Dosage: 20 MG, OTHER
     Route: 048
     Dates: start: 20060808, end: 20061016

REACTIONS (4)
  - DISEASE PROGRESSION [None]
  - MALIGNANT NEOPLASM PROGRESSION [None]
  - THROMBOCYTOPENIA [None]
  - TUMOUR LYSIS SYNDROME [None]
